FAERS Safety Report 8246661 (Version 2)
Quarter: 2013Q3

REPORT INFORMATION
  Report Type: Spontaneous
  Country: JP (occurrence: JP)
  Receive Date: 20111116
  Receipt Date: 20130819
  Transmission Date: 20140515
  Serious: Yes (Other)
  Sender: FDA-Public Use
  Company Number: JP-SANOFI-AVENTIS-2011SA074681

PATIENT
  Age: 60 Year
  Sex: Male

DRUGS (7)
  1. ELPLAT [Suspect]
     Indication: COLON CANCER
     Route: 041
     Dates: start: 20100603, end: 20100603
  2. ELPLAT [Suspect]
     Indication: COLON CANCER
     Route: 041
     Dates: start: 20100617, end: 20100617
  3. ELPLAT [Suspect]
     Indication: COLON CANCER
     Route: 041
     Dates: start: 20100702, end: 20100702
  4. FLUOROURACIL [Concomitant]
     Indication: COLON CANCER
     Route: 040
     Dates: start: 20100603, end: 20100702
  5. FLUOROURACIL [Concomitant]
     Indication: COLON CANCER
     Dosage: TOTAL 3 CYCLES
     Route: 042
     Dates: start: 20100603, end: 20100702
  6. CALCIUM LEVOFOLINATE [Concomitant]
     Indication: COLON CANCER
     Dates: start: 20100603, end: 20100702
  7. AVASTIN [Concomitant]
     Indication: COLON CANCER
     Dates: start: 20100603, end: 20100702

REACTIONS (1)
  - Hyperammonaemia [Unknown]
